FAERS Safety Report 17942672 (Version 1)
Quarter: 2020Q2

REPORT INFORMATION
  Report Type: Spontaneous
  Country: CN (occurrence: CN)
  Receive Date: 20200625
  Receipt Date: 20200625
  Transmission Date: 20200714
  Serious: Yes (Hospitalization, Other)
  Sender: FDA-Public Use
  Company Number: CN-PFIZER INC-2020243515

PATIENT
  Age: 5 Year
  Sex: Female
  Weight: 18.3 kg

DRUGS (4)
  1. METHOTREXATE. [Suspect]
     Active Substance: METHOTREXATE
     Indication: BONE SARCOMA
     Dosage: 5.8 G, 2X/DAY
     Route: 041
     Dates: start: 20200608, end: 20200608
  2. PALONOSETRON HYDROCHLORIDE. [Concomitant]
     Active Substance: PALONOSETRON HYDROCHLORIDE
     Indication: NEOPLASM
     Dosage: 0.25 MG, 1X/DAY
     Route: 041
     Dates: start: 20200608, end: 20200608
  3. METHOTREXATE. [Suspect]
     Active Substance: METHOTREXATE
     Dosage: 8.8 G IN TOTAL
     Route: 041
     Dates: start: 20200608, end: 20200608
  4. CALCIUM LEVOFOLINATE [Concomitant]
     Active Substance: LEVOLEUCOVORIN CALCIUM
     Indication: NEOPLASM
     Dosage: 12 MG, 1X/DAY
     Route: 041
     Dates: start: 20200608, end: 20200608

REACTIONS (2)
  - Hepatitis [Recovering/Resolving]
  - Liver injury [Recovering/Resolving]

NARRATIVE: CASE EVENT DATE: 20200609
